FAERS Safety Report 7627526-1 (Version None)
Quarter: 2011Q3

REPORT INFORMATION
  Report Type: 
  Country: None (occurrence: None)
  Receive Date: 20110721
  Receipt Date: 20110711
  Transmission Date: 20111222
  Serious: Yes (Death)
  Sender: FDA-Public Use
  Company Number: US-MYLANLABS-2011S1014267

PATIENT
  Age: 16 Year
  Sex: Male

DRUGS (2)
  1. OTHER NERVOUS SYSTEM DRUGS [Concomitant]
     Indication: ATTENTION DEFICIT/HYPERACTIVITY DISORDER
  2. AMNESTEEM [Suspect]
     Indication: ACNE

REACTIONS (4)
  - PSYCHIATRIC SYMPTOM [None]
  - GUN SHOT WOUND [None]
  - COMPLETED SUICIDE [None]
  - PARENT-CHILD PROBLEM [None]
